FAERS Safety Report 24035081 (Version 2)
Quarter: 2024Q3

REPORT INFORMATION
  Report Type: Spontaneous
  Country: GB (occurrence: GB)
  Receive Date: 20240701
  Receipt Date: 20240721
  Transmission Date: 20241016
  Serious: Yes (Hospitalization)
  Sender: MYLAN
  Company Number: GB-MYLANLABS-2024M1061011

PATIENT
  Sex: Male

DRUGS (12)
  1. CLOZARIL [Suspect]
     Active Substance: CLOZAPINE
     Indication: Schizophrenia
     Dosage: UNK
     Route: 048
     Dates: start: 20220915, end: 20240621
  2. CLOZARIL [Suspect]
     Active Substance: CLOZAPINE
     Dosage: 50 MILLIGRAM, BID (BD)
     Route: 065
     Dates: start: 20240702
  3. CLOZARIL [Suspect]
     Active Substance: CLOZAPINE
     Dosage: 50 MILLIGRAM, BID (BD)
     Route: 065
     Dates: start: 20240703
  4. CLOZARIL [Suspect]
     Active Substance: CLOZAPINE
     Dosage: 50 MILLIGRAM, BID (BD)
     Route: 065
     Dates: start: 20240704
  5. CLOZARIL [Suspect]
     Active Substance: CLOZAPINE
     Dosage: 125 MILLIGRAM, QD (50MG OM 75MG ON)
     Route: 065
     Dates: start: 20240705
  6. CLOZARIL [Suspect]
     Active Substance: CLOZAPINE
     Dosage: 125 MILLIGRAM, QD (50MG OM 75MG ON)
     Route: 065
     Dates: start: 20240706
  7. CLOZARIL [Suspect]
     Active Substance: CLOZAPINE
     Dosage: 75 MILLIGRAM, BID (BD)
     Route: 065
     Dates: start: 20240707
  8. CLOZARIL [Suspect]
     Active Substance: CLOZAPINE
     Dosage: 75 MILLIGRAM, BID (BD)
     Route: 065
     Dates: start: 20240708
  9. CLOZARIL [Suspect]
     Active Substance: CLOZAPINE
     Dosage: 175 MILLIGRAM, QD (75MG OM, 100MG ON)
     Route: 065
     Dates: start: 20240709
  10. CLOZARIL [Suspect]
     Active Substance: CLOZAPINE
     Dosage: 175 MILLIGRAM, QD (75MG OM, 100MG ON)
     Route: 065
     Dates: start: 20240710
  11. CLOZARIL [Suspect]
     Active Substance: CLOZAPINE
     Dosage: 175 MILLIGRAM, QD (75MG OM, 100MG ON)
     Route: 065
     Dates: start: 20240711
  12. CLOZARIL [Suspect]
     Active Substance: CLOZAPINE
     Dosage: 200 MILLIGRAM, QD (75MG OM AND 125MG ON)
     Route: 065
     Dates: start: 20240712

REACTIONS (5)
  - Schizophrenia [Unknown]
  - Coma scale abnormal [Unknown]
  - Loss of consciousness [Unknown]
  - Somnolence [Unknown]
  - Treatment noncompliance [Unknown]
